FAERS Safety Report 4401860-0 (Version None)
Quarter: 2004Q3

REPORT INFORMATION
  Report Type: 
  Country: None (occurrence: None)
  Receive Date: 20040714
  Receipt Date: 20040625
  Transmission Date: 20050211
  Serious: Yes (Disabling, Other)
  Sender: FDA-Public Use
  Company Number: USA040668852

PATIENT
  Age: 50 Year
  Sex: Female
  Weight: 114 kg

DRUGS (2)
  1. HUMALOG MIX 75/25 [Suspect]
     Dosage: 60 U DAY
     Dates: start: 20020101
  2. INSULIN [Suspect]
     Dates: start: 19790101

REACTIONS (6)
  - BLOOD GLUCOSE INCREASED [None]
  - CARDIAC FAILURE CONGESTIVE [None]
  - CEREBROVASCULAR ACCIDENT [None]
  - HYPERTENSION [None]
  - PHARMACEUTICAL PRODUCT COMPLAINT [None]
  - WEIGHT FLUCTUATION [None]
